FAERS Safety Report 8790179 (Version 2)
Quarter: 2012Q4

REPORT INFORMATION
  Report Type: 
  Country: IT (occurrence: IT)
  Receive Date: 20120917
  Receipt Date: 20121003
  Transmission Date: 20130627
  Serious: Yes (Hospitalization)
  Sender: FDA-Public Use
  Company Number: IT-SANOFI-AVENTIS-2012SA064578

PATIENT
  Age: 39 Year
  Sex: Male

DRUGS (1)
  1. CLEXANE [Suspect]
     Indication: PROPHYLAXIS
     Route: 058
     Dates: start: 20120703, end: 20120719

REACTIONS (2)
  - Gastric ulcer [Recovering/Resolving]
  - Anaemia [Recovering/Resolving]
